FAERS Safety Report 7911603-1 (Version None)
Quarter: 2011Q4

REPORT INFORMATION
  Report Type: 
  Country: None (occurrence: None)
  Receive Date: 20111114
  Receipt Date: 20111108
  Transmission Date: 20120403
  Serious: No
  Sender: FDA-Public Use
  Company Number: US-TEVA-308411USA

PATIENT
  Age: 59 Year
  Sex: Female

DRUGS (2)
  1. PIMOZIDE TABLETS [Suspect]
     Indication: TOURETTE'S DISORDER
     Route: 048
     Dates: start: 20111101
  2. BENZTROPINE MESYLATE [Interacting]

REACTIONS (6)
  - BRUXISM [None]
  - JAW DISORDER [None]
  - DRUG EFFECT DECREASED [None]
  - DRUG INTERACTION [None]
  - EXTRAPYRAMIDAL DISORDER [None]
  - FEAR [None]
